FAERS Safety Report 11075243 (Version 2)
Quarter: 2015Q3

REPORT INFORMATION
  Report Type: Spontaneous
  Country: IT (occurrence: IT)
  Receive Date: 20150429
  Receipt Date: 20150706
  Transmission Date: 20151125
  Serious: Yes (Other)
  Sender: FDA-Public Use
  Company Number: IT-PFIZER INC-2015142340

PATIENT
  Age: 65 Year
  Sex: Male

DRUGS (4)
  1. PLAVIX [Concomitant]
     Active Substance: CLOPIDOGREL BISULFATE
     Route: 048
  2. TAZOCIN [Suspect]
     Active Substance: PIPERACILLIN SODIUM\TAZOBACTAM SODIUM
     Dosage: 2 G, DAILY
     Route: 030
     Dates: start: 20150201, end: 20150201
  3. PERSANTIN [Concomitant]
     Active Substance: DIPYRIDAMOLE
     Route: 048
  4. COUMADIN [Suspect]
     Active Substance: WARFARIN SODIUM
     Dosage: 1+1/2 TABLET FOR 5 DAYS/WEEK AND 1+3/4 TABLET FOR 2 DAYS/WEEK
     Route: 048

REACTIONS (1)
  - Injection site haematoma [Recovering/Resolving]

NARRATIVE: CASE EVENT DATE: 20150201
